FAERS Safety Report 7572781-X (Version None)
Quarter: 2011Q2

REPORT INFORMATION
  Report Type: 
  Country: None (occurrence: None)
  Receive Date: 20110627
  Receipt Date: 20110623
  Transmission Date: 20111010
  Serious: No
  Sender: FDA-Public Use
  Company Number: US-PFIZER INC-2011140642

PATIENT
  Sex: Female
  Weight: 68 kg

DRUGS (7)
  1. ZOLPIDEM [Concomitant]
     Indication: INSOMNIA
     Dosage: 2.5 MG, DAILY
     Route: 048
  2. HYDRALAZINE [Concomitant]
     Indication: ANTIALLERGIC THERAPY
     Dosage: 15 MG, DAILY
     Route: 048
  3. MONTELUKAST [Concomitant]
     Indication: PAIN
     Dosage: 10 MG, DAILY
     Route: 048
  4. PERCOCET [Concomitant]
     Dosage: 5/325 MG, DAILY
     Route: 048
  5. NEURONTIN [Suspect]
     Indication: NEURALGIA
     Dosage: 300 MG, 3X/DAY
     Route: 048
     Dates: start: 20110501
  6. ELMIRON [Concomitant]
     Indication: CYSTITIS INTERSTITIAL
     Dosage: 100 MG, 3X/DAY
     Route: 048
  7. WELLBUTRIN [Concomitant]
     Indication: DEPRESSION
     Dosage: 150 MG, DAILY
     Route: 048

REACTIONS (1)
  - HEADACHE [None]
